FAERS Safety Report 4553698-1 (Version None)
Quarter: 2004Q4

REPORT INFORMATION
  Report Type: 
  Country: None (occurrence: None)
  Receive Date: 20041230
  Receipt Date: 20040721
  Transmission Date: 20050328
  Serious: Yes (Death)
  Sender: FDA-Public Use
  Company Number: 04-07-1066

PATIENT
  Age: 60 Year
  Sex: Female

DRUGS (5)
  1. CLOZAPINE [Suspect]
     Indication: MANIA
     Dosage: 400MG QD ORAL
     Route: 048
     Dates: start: 20000901, end: 20040601
  2. CLOZAPINE [Suspect]
     Indication: SCHIZOAFFECTIVE DISORDER
     Dosage: 400MG QD ORAL
     Route: 048
     Dates: start: 20000901, end: 20040601
  3. LEXAPRO [Concomitant]
  4. RISPERDAL [Concomitant]
  5. ATIVAN [Concomitant]

REACTIONS (1)
  - SUDDEN CARDIAC DEATH [None]
